FAERS Safety Report 9802761 (Version 1)
Quarter: 2014Q1

REPORT INFORMATION
  Report Type: Spontaneous
  Country: US (occurrence: US)
  Receive Date: 20140108
  Receipt Date: 20140108
  Transmission Date: 20141002
  Serious: No
  Sender: FDA-Public Use
  Company Number: US-009507513-1401USA001139

PATIENT
  Sex: Female
  Weight: 58.96 kg

DRUGS (2)
  1. NEXPLANON [Suspect]
     Dosage: UNK
     Dates: start: 20140102, end: 20140102
  2. NEXPLANON [Suspect]
     Dosage: UNK
     Dates: start: 20140102

REACTIONS (2)
  - Device difficult to use [Unknown]
  - Product quality issue [Unknown]
